FAERS Safety Report 11612268 (Version 1)
Quarter: 2015Q4

REPORT INFORMATION
  Report Type: Other
  Country: US (occurrence: US)
  Receive Date: 20151008
  Receipt Date: 20151008
  Transmission Date: 20160304
  Serious: Yes (Death, Other)
  Sender: FDA-Public Use
  Company Number: US-ACORDA-ACO_110649_2015

PATIENT
  Sex: Female

DRUGS (1)
  1. AMPYRA [Suspect]
     Active Substance: DALFAMPRIDINE
     Indication: MULTIPLE SCLEROSIS
     Dosage: 10 MG, BID
     Route: 048
     Dates: start: 201305

REACTIONS (10)
  - Mood altered [Unknown]
  - Depression [Unknown]
  - Bedridden [Unknown]
  - Decreased interest [Unknown]
  - Activities of daily living impaired [Unknown]
  - Multiple sclerosis [Fatal]
  - Malnutrition [Fatal]
  - Decreased appetite [Fatal]
  - Confusional state [Unknown]
  - Aggression [Unknown]
